FAERS Safety Report 5028949-X (Version None)
Quarter: 2006Q2

REPORT INFORMATION
  Report Type: 
  Country: None (occurrence: None)
  Receive Date: 20060619
  Receipt Date: 20060509
  Transmission Date: 20061013
  Serious: Yes (Disabling)
  Sender: FDA-Public Use
  Company Number: 2006CG00831

PATIENT
  Age: 594 Month
  Sex: Female
  Weight: 65 kg

DRUGS (1)
  1. FASLODEX [Suspect]
     Indication: BREAST CANCER
     Route: 030
     Dates: start: 20051215, end: 20060115

REACTIONS (1)
  - DYSPHONIA [None]
